FAERS Safety Report 12517236 (Version 1)
Quarter: 2016Q2

REPORT INFORMATION
  Report Type: Spontaneous
  Country: DE (occurrence: DE)
  Receive Date: 20160630
  Receipt Date: 20160630
  Transmission Date: 20160815
  Serious: Yes (Congenital Anomaly)
  Sender: FDA-Public Use
  Company Number: DE-PFIZER INC-2016316759

PATIENT
  Age: 1 Day
  Sex: Male
  Weight: 3.49 kg

DRUGS (6)
  1. VENLAFAXINE HCL [Suspect]
     Active Substance: VENLAFAXINE HYDROCHLORIDE
     Dosage: 112 MG, DAILY, GW 37+1--DELIVERY IN 39.4 GW
     Route: 064
     Dates: start: 20150118, end: 20151022
  2. SEROQUEL [Suspect]
     Active Substance: QUETIAPINE FUMARATE
     Indication: DEPRESSION
     Dosage: 200 MG, DAILY, 0-39.4 GW
     Route: 064
     Dates: start: 20150118, end: 20151022
  3. DAS GESUNDE PLUS A-Z MAMA [Concomitant]
     Indication: PROPHYLAXIS OF NEURAL TUBE DEFECT
     Dosage: 0.4 MG, DAILY, 4.2. - 39.2 GW
     Route: 064
     Dates: start: 20150217, end: 20151020
  4. VENLAFAXINE HCL [Suspect]
     Active Substance: VENLAFAXINE HYDROCHLORIDE
     Indication: DEPRESSION
     Dosage: 225 MG, DAILY UNTIL GW 34+0
     Route: 064
     Dates: start: 20150118, end: 20151022
  5. VENLAFAXINE HCL [Suspect]
     Active Substance: VENLAFAXINE HYDROCHLORIDE
     Dosage: 150 MG, DAILY, GW 35+1-37+0
     Route: 064
     Dates: start: 20150118, end: 20151022
  6. VENLAFAXINE HCL [Suspect]
     Active Substance: VENLAFAXINE HYDROCHLORIDE
     Dosage: 187.5 MG, DAILY GW 34+1-35+0
     Route: 064
     Dates: start: 20150118, end: 20151022

REACTIONS (2)
  - Penoscrotal fusion [Not Recovered/Not Resolved]
  - Maternal exposure during pregnancy [Not Recovered/Not Resolved]

NARRATIVE: CASE EVENT DATE: 20151022
